FAERS Safety Report 8010986-4 (Version None)
Quarter: 2011Q4

REPORT INFORMATION
  Report Type: 
  Country: None (occurrence: None)
  Receive Date: 20111228
  Receipt Date: 20111222
  Transmission Date: 20120403
  Serious: Yes (Death)
  Sender: FDA-Public Use
  Company Number: US-PFIZER INC-2011312484

PATIENT
  Sex: Female

DRUGS (1)
  1. VFEND [Suspect]
     Dosage: 200 MG, 2X/DAY
     Dates: start: 20110620

REACTIONS (1)
  - DEATH [None]
